FAERS Safety Report 13238865 (Version 1)
Quarter: 2017Q1

REPORT INFORMATION
  Report Type: Spontaneous
  Country: US (occurrence: US)
  Receive Date: 20170216
  Receipt Date: 20170216
  Transmission Date: 20170428
  Serious: No
  Sender: FDA-Public Use
  Company Number: US-STRIDES ARCOLAB LIMITED-2016SP018473

PATIENT

DRUGS (1)
  1. TACROLIMUS. [Suspect]
     Active Substance: TACROLIMUS
     Indication: IMMUNOSUPPRESSION
     Dosage: UNK UNK, UNKNOWN
     Route: 065

REACTIONS (9)
  - Mutism [Recovered/Resolved]
  - Speech disorder [Not Recovered/Not Resolved]
  - Drug level increased [Recovered/Resolved]
  - Tremor [Unknown]
  - Ataxia [Not Recovered/Not Resolved]
  - Dysarthria [Recovered/Resolved]
  - Eye disorder [Unknown]
  - Aphasia [Recovered/Resolved]
  - Agitation [Unknown]
